FAERS Safety Report 10440787 (Version 1)
Quarter: 2014Q3

REPORT INFORMATION
  Report Type: Spontaneous
  Country: US (occurrence: None)
  Receive Date: 20140908
  Receipt Date: 20140908
  Transmission Date: 20150326
  Serious: No
  Sender: FDA-Public Use
  Company Number: None

PATIENT
  Age: 56 Year
  Sex: Female
  Weight: 78.47 kg

DRUGS (17)
  1. ASPIRIN (GENERIC) [Concomitant]
  2. LISINOPRIL. [Suspect]
     Active Substance: LISINOPRIL
     Indication: HYPERTENSION
     Route: 048
     Dates: start: 20140831, end: 20140831
  3. LISINOPRIL. [Suspect]
     Active Substance: LISINOPRIL
     Indication: RENAL INJURY
     Route: 048
     Dates: start: 20140831, end: 20140831
  4. DEXILANT (NAME BRAND) [Concomitant]
  5. CETIRIZINE (GENERIC) [Concomitant]
  6. METRONIDAZOLE GEL [Concomitant]
  7. BYSTOLIC (NAME BRAND) [Concomitant]
  8. CVS SPECTRAVITE [Concomitant]
  9. CALCIUM [Concomitant]
     Active Substance: CALCIUM
  10. FISH OIL [Concomitant]
     Active Substance: FISH OIL
  11. VITAMIN D3 [Concomitant]
     Active Substance: CHOLECALCIFEROL
  12. CLONIDINE (GENERIC) [Concomitant]
  13. ALPRAZOLAM (GENERIC) [Concomitant]
  14. FLAX OIL [Concomitant]
  15. WELLBUTRIN SR (NAME BRAND) [Concomitant]
  16. ABILITY (NAME BRAND) [Concomitant]
  17. AMLODIPINE BESYLATE (GENERIC) [Concomitant]

REACTIONS (5)
  - Dyspnoea [None]
  - Dizziness [None]
  - Diarrhoea [None]
  - Asthenia [None]
  - Nausea [None]

NARRATIVE: CASE EVENT DATE: 20140901
